FAERS Safety Report 8583481-1 (Version None)
Quarter: 2012Q3

REPORT INFORMATION
  Report Type: 
  Country: None (occurrence: None)
  Receive Date: 20120809
  Receipt Date: 20120802
  Transmission Date: 20120928
  Serious: Yes (Hospitalization)
  Sender: FDA-Public Use
  Company Number: JP-GILEAD-2012-0054989

PATIENT
  Sex: Female

DRUGS (14)
  1. MALFA [Concomitant]
     Dosage: 40ML PER DAY
     Route: 048
     Dates: start: 20120424, end: 20120501
  2. ALLOID G [Concomitant]
     Dosage: 80ML PER DAY
     Route: 048
     Dates: start: 20120424, end: 20120501
  3. ADCIRCA [Concomitant]
     Indication: PULMONARY HYPERTENSION
     Dosage: 20MG PER DAY
     Route: 048
     Dates: start: 20110210
  4. OMEPRAZOLE [Concomitant]
     Dosage: 20MG PER DAY
     Route: 048
     Dates: start: 20101028
  5. AMBRISENTAN [Suspect]
     Indication: PULMONARY HYPERTENSION
     Dosage: 2.5 MG, QD
     Route: 048
     Dates: start: 20120126, end: 20120307
  6. ADALAT [Concomitant]
     Dosage: 20MG PER DAY
     Route: 048
     Dates: start: 20100731
  7. FUROSEMIDE [Concomitant]
     Route: 048
  8. AMBRISENTAN [Suspect]
     Dosage: 5 MG QD
     Route: 048
     Dates: start: 20120308, end: 20120427
  9. BERAPROST [Concomitant]
     Indication: PULMONARY HYPERTENSION
     Dosage: 360MCG PER DAY
     Route: 048
     Dates: start: 20100731
  10. FUROSEMIDE [Concomitant]
     Route: 048
  11. EPLERENONE [Concomitant]
     Dosage: 50MG PER DAY
     Route: 048
     Dates: start: 20100731
  12. AMBRISENTAN [Suspect]
     Dosage: 2.5 MG, TID
     Route: 048
     Dates: start: 20120428
  13. ALLOPURINOL [Concomitant]
     Dosage: 100MG PER DAY
     Route: 048
     Dates: start: 20100731
  14. BEPRICOR [Concomitant]
     Dosage: 100MG PER DAY
     Route: 048
     Dates: start: 20111130

REACTIONS (2)
  - ANAEMIA [None]
  - PANCYTOPENIA [None]
